FAERS Safety Report 16796846 (Version 3)
Quarter: 2020Q1

REPORT INFORMATION
  Report Type: Report from Study
  Country: US (occurrence: US)
  Receive Date: 20190911
  Receipt Date: 20200325
  Transmission Date: 20200409
  Serious: Yes (Death, Other)
  Sender: FDA-Public Use
  Company Number: PHEH2019US036863

PATIENT
  Age: 22 Year
  Sex: Male
  Weight: 81.9 kg

DRUGS (2)
  1. KYMRIAH [Suspect]
     Active Substance: TISAGENLECLEUCEL
     Indication: B-CELL TYPE ACUTE LEUKAEMIA
  2. KYMRIAH [Suspect]
     Active Substance: TISAGENLECLEUCEL
     Indication: ACUTE LYMPHOCYTIC LEUKAEMIA
     Route: 065

REACTIONS (9)
  - Hypogammaglobulinaemia [Unknown]
  - Pyrexia [Unknown]
  - Haematocrit decreased [Unknown]
  - Treatment failure [Fatal]
  - Sinusitis [Unknown]
  - Rhinovirus infection [Unknown]
  - Platelet count decreased [Unknown]
  - Human metapneumovirus test positive [Unknown]
  - Haemoglobin decreased [Unknown]

NARRATIVE: CASE EVENT DATE: 20190711
